FAERS Safety Report 21653028 (Version 2)
Quarter: 2023Q1

REPORT INFORMATION
  Report Type: Spontaneous
  Country: US (occurrence: US)
  Receive Date: 20221128
  Receipt Date: 20230218
  Transmission Date: 20230418
  Serious: No
  Sender: FDA-Public Use
  Company Number: US-BoehringerIngelheim-2022-BI-205165

PATIENT
  Age: 81 Year
  Sex: Female

DRUGS (1)
  1. SPIRIVA [Suspect]
     Active Substance: TIOTROPIUM BROMIDE MONOHYDRATE
     Indication: Product used for unknown indication
     Route: 048

REACTIONS (4)
  - Spinal disorder [Unknown]
  - Intentional product misuse [Not Recovered/Not Resolved]
  - Sputum discoloured [Unknown]
  - Aneurysm [Unknown]

NARRATIVE: CASE EVENT DATE: 20221128
